FAERS Safety Report 16589894 (Version 1)
Quarter: 2019Q3

REPORT INFORMATION
  Report Type: Spontaneous
  Country: IT (occurrence: IT)
  Receive Date: 20190718
  Receipt Date: 20190718
  Transmission Date: 20191004
  Serious: Yes (Disabling)
  Sender: FDA-Public Use
  Company Number: IT-BAYER-2019-064185

PATIENT
  Age: 42 Year
  Sex: Female
  Weight: 48 kg

DRUGS (1)
  1. CIPROXIN [Suspect]
     Active Substance: CIPROFLOXACIN
     Indication: CYSTITIS
     Dosage: 500 G, PRN
     Route: 048

REACTIONS (2)
  - Cystitis [Not Recovered/Not Resolved]
  - Drug ineffective [Not Recovered/Not Resolved]

NARRATIVE: CASE EVENT DATE: 20070705
